FAERS Safety Report 15183944 (Version 6)
Quarter: 2021Q2

REPORT INFORMATION
  Report Type: Spontaneous
  Country: DK (occurrence: DK)
  Receive Date: 20180723
  Receipt Date: 20210401
  Transmission Date: 20210716
  Serious: Yes (Hospitalization, Other)
  Sender: FDA-Public Use
  Company Number: DK-TAKEDA-2018TUS022777

PATIENT
  Age: 32 Year
  Sex: Female
  Weight: 52 kg

DRUGS (18)
  1. NATALIZUMAB [Suspect]
     Active Substance: NATALIZUMAB
     Indication: CROHN^S DISEASE
     Dosage: UNK
     Route: 065
  2. INFLIXIMAB [Suspect]
     Active Substance: INFLIXIMAB
     Indication: CROHN^S DISEASE
     Dosage: UNK
     Route: 065
  3. 6?MERCAPTOPURINE MONOHYDRATE [Suspect]
     Active Substance: MERCAPTOPURINE
     Indication: CROHN^S DISEASE
     Dosage: UNK
     Route: 065
  4. ESCITALOPRAM [Suspect]
     Active Substance: ESCITALOPRAM OXALATE
     Indication: DEPRESSION
     Dosage: 40 MG, QD
     Route: 065
  5. LAMOTRIGINE. [Concomitant]
     Active Substance: LAMOTRIGINE
     Indication: EPILEPSY
     Dosage: 400 MG, QD
     Route: 065
  6. COLESEVELAM [Concomitant]
     Active Substance: COLESEVELAM
     Indication: CROHN^S DISEASE
     Dosage: 625 MG, TID
     Route: 065
  7. SPIRONOLACTONE. [Suspect]
     Active Substance: SPIRONOLACTONE
     Indication: DIARRHOEA
     Dosage: UNK
     Route: 065
  8. COLESTYRAMINE [Concomitant]
     Active Substance: CHOLESTYRAMINE
     Indication: BILE ACID MALABSORPTION
     Dosage: UNK
     Route: 065
  9. ENTYVIO [Suspect]
     Active Substance: VEDOLIZUMAB
     Indication: CROHN^S DISEASE
     Dosage: UNK
     Route: 065
  10. LIRAGLUTIDE [Suspect]
     Active Substance: LIRAGLUTIDE
     Indication: DIARRHOEA
     Dosage: UNK
     Route: 065
  11. LEVETIRACETAM. [Concomitant]
     Active Substance: LEVETIRACETAM
     Indication: DEPRESSION
     Dosage: 1500 MG, QD
     Route: 065
  12. VENLAFAXIN [Concomitant]
     Active Substance: VENLAFAXINE HYDROCHLORIDE
     Indication: DEPRESSION
     Dosage: 225 MG, QD
     Route: 065
  13. ADALIMUMAB [Suspect]
     Active Substance: ADALIMUMAB
     Indication: CROHN^S DISEASE
     Dosage: UNK
     Route: 065
  14. COLESEVELAM [Concomitant]
     Active Substance: COLESEVELAM
     Indication: BILE ACID MALABSORPTION
  15. PANTOPRAZOLE [Suspect]
     Active Substance: PANTOPRAZOLE
     Indication: BILE ACID MALABSORPTION
     Dosage: UNK
     Route: 065
  16. CODEINE PHOSPHATE [Suspect]
     Active Substance: CODEINE PHOSPHATE
     Indication: BILE ACID MALABSORPTION
     Dosage: UNK
     Route: 065
  17. OCTREOTIDE                         /00821002/ [Suspect]
     Active Substance: OCTREOTIDE ACETATE
     Indication: DIARRHOEA
     Dosage: UNK
     Route: 065
  18. LOPERAMIDE [Concomitant]
     Active Substance: LOPERAMIDE
     Indication: BILE ACID MALABSORPTION
     Dosage: UNK
     Route: 065

REACTIONS (8)
  - Therapeutic response decreased [Unknown]
  - Clostridium difficile colitis [Unknown]
  - Drug ineffective [Unknown]
  - Product use in unapproved indication [Unknown]
  - Bile acid malabsorption [Not Recovered/Not Resolved]
  - Functional gastrointestinal disorder [Not Recovered/Not Resolved]
  - Abdominal pain [Unknown]
  - Drug ineffective for unapproved indication [Unknown]
